FAERS Safety Report 13839989 (Version 1)
Quarter: 2017Q3

REPORT INFORMATION
  Report Type: Spontaneous
  Country: US (occurrence: US)
  Receive Date: 20170807
  Receipt Date: 20170807
  Transmission Date: 20171127
  Serious: Yes (Hospitalization)
  Sender: FDA-Public Use
  Company Number: US-LPDUSPRD-20171087

PATIENT
  Age: 81 Year
  Sex: Male

DRUGS (1)
  1. FERINJECT [Suspect]
     Active Substance: FERRIC CARBOXYMALTOSE
     Dosage: UNKNOWN
     Route: 042

REACTIONS (10)
  - Wheelchair user [Unknown]
  - Blood parathyroid hormone increased [Unknown]
  - Fall [Unknown]
  - Spinal cord compression [Unknown]
  - Dyskinesia [None]
  - Motor dysfunction [Unknown]
  - Back pain [Recovered/Resolved]
  - Blood 1,25-dihydroxycholecalciferol decreased [Recovered/Resolved]
  - Fibroblast growth factor 23 increased [Recovered/Resolved]
  - Osteopenia [Unknown]
